FAERS Safety Report 4821206-3 (Version None)
Quarter: 2005Q4

REPORT INFORMATION
  Report Type: 
  Country: None (occurrence: None)
  Receive Date: 20051103
  Receipt Date: 20051023
  Transmission Date: 20060501
  Serious: Yes (Other)
  Sender: FDA-Public Use
  Company Number: 2005146351

PATIENT
  Sex: Female

DRUGS (5)
  1. CELEBREX [Suspect]
     Indication: ILL-DEFINED DISORDER
  2. NEURONTIN [Suspect]
     Indication: NEURALGIA
  3. VIOXX [Suspect]
     Indication: ILL-DEFINED DISORDER
  4. MOBIC [Suspect]
     Indication: ILL-DEFINED DISORDER
  5. NSAID'S (NSAID'S) [Suspect]
     Indication: ILL-DEFINED DISORDER

REACTIONS (3)
  - ABDOMINAL DISTENSION [None]
  - DRUG INEFFECTIVE [None]
  - SPINAL OPERATION [None]
